FAERS Safety Report 6187010-1 (Version None)
Quarter: 2009Q2

REPORT INFORMATION
  Report Type: 
  Country: None (occurrence: None)
  Receive Date: 20090508
  Receipt Date: 20090508
  Transmission Date: 20091009
  Serious: Yes (Other)
  Sender: FDA-Public Use
  Company Number: None

PATIENT
  Age: 73 Year
  Sex: Female
  Weight: 77 kg

DRUGS (1)
  1. LIDOCAINE 2% W/EPINEPHRINE 1:200000 INJ [Suspect]
     Indication: LOCAL ANAESTHESIA
     Dosage: ONCE INTRAOCULAR
     Route: 031
     Dates: start: 20090505, end: 20090505

REACTIONS (2)
  - ANAESTHETIC COMPLICATION [None]
  - DRUG INEFFECTIVE [None]
